FAERS Safety Report 7460949-2 (Version None)
Quarter: 2011Q2

REPORT INFORMATION
  Report Type: 
  Country: None (occurrence: None)
  Receive Date: 20110505
  Receipt Date: 20110503
  Transmission Date: 20111010
  Serious: Yes (Other)
  Sender: FDA-Public Use
  Company Number: US-AMGEN-USASP2011020573

PATIENT
  Sex: Male
  Weight: 79.501 kg

DRUGS (1)
  1. NPLATE [Suspect]
     Indication: IDIOPATHIC THROMBOCYTOPENIC PURPURA
     Dosage: 2 A?G/KG, UNK
     Route: 058
     Dates: start: 20101108, end: 20101115

REACTIONS (2)
  - DRUG INEFFECTIVE [None]
  - NEOPLASM MALIGNANT [None]
